FAERS Safety Report 18906214 (Version 2)
Quarter: 2024Q3

REPORT INFORMATION
  Report Type: Spontaneous
  Country: US (occurrence: US)
  Receive Date: 20210217
  Receipt Date: 20240812
  Transmission Date: 20241017
  Serious: No
  Sender: PFIZER
  Company Number: US-PFIZER INC-2020128275

PATIENT
  Age: 54 Year
  Sex: Female
  Weight: 91.63 kg

DRUGS (1)
  1. PREMARIN [Suspect]
     Active Substance: ESTROGENS, CONJUGATED
     Indication: Menopause
     Dosage: 0.3 MG, ALTERNATE DAY
     Route: 048

REACTIONS (4)
  - Speech disorder [Unknown]
  - Back pain [Unknown]
  - Intentional product misuse [Unknown]
  - Intentional dose omission [Unknown]
